FAERS Safety Report 12760786 (Version 1)
Quarter: 2016Q3

REPORT INFORMATION
  Report Type: Spontaneous
  Country: US (occurrence: US)
  Receive Date: 20160919
  Receipt Date: 20160919
  Transmission Date: 20161109
  Serious: No
  Sender: FDA-Public Use
  Company Number: US-ASTRAZENECA-2016SE56676

PATIENT
  Age: 58 Year
  Sex: Female

DRUGS (8)
  1. MIRABEGRON [Suspect]
     Active Substance: MIRABEGRON
     Indication: BLOOD PRESSURE ABNORMAL
     Route: 048
     Dates: start: 201605
  2. MIRABEGRON [Suspect]
     Active Substance: MIRABEGRON
     Indication: BLOOD PRESSURE ABNORMAL
     Route: 048
     Dates: end: 20160524
  3. MIRABEGRON [Suspect]
     Active Substance: MIRABEGRON
     Indication: MICTURITION URGENCY
     Route: 048
     Dates: end: 20160524
  4. MACROBID [Suspect]
     Active Substance: NITROFURANTOIN\NITROFURANTOIN MONOHYDRATE
     Indication: MICTURITION URGENCY
     Route: 065
  5. MIRABEGRON [Suspect]
     Active Substance: MIRABEGRON
     Indication: MICTURITION URGENCY
     Route: 048
     Dates: start: 201605
  6. NORVASC [Suspect]
     Active Substance: AMLODIPINE BESYLATE
     Indication: BLOOD PRESSURE ABNORMAL
     Route: 065
  7. TOPROL XL [Suspect]
     Active Substance: METOPROLOL SUCCINATE
     Indication: BLOOD PRESSURE ABNORMAL
     Route: 048
     Dates: start: 201605
  8. TOPROL XL [Suspect]
     Active Substance: METOPROLOL SUCCINATE
     Indication: MICTURITION URGENCY
     Route: 048
     Dates: start: 201605

REACTIONS (9)
  - Emotional disorder [Unknown]
  - Intentional product misuse [Unknown]
  - Vulvovaginal pruritus [Recovered/Resolved]
  - Drug ineffective [Unknown]
  - Nocturia [Not Recovered/Not Resolved]
  - Drug dose omission [Unknown]
  - Frustration tolerance decreased [Unknown]
  - Hypertonic bladder [Unknown]
  - Headache [Unknown]

NARRATIVE: CASE EVENT DATE: 201605
